FAERS Safety Report 17823935 (Version 3)
Quarter: 2020Q3

REPORT INFORMATION
  Report Type: Spontaneous
  Country: GB (occurrence: GB)
  Receive Date: 20200526
  Receipt Date: 20200710
  Transmission Date: 20201102
  Serious: Yes (Life-Threatening, Hospitalization, Other)
  Sender: FDA-Public Use
  Company Number: GB-EMCURE PHARMACEUTICALS LTD-2020-EPL-000656

PATIENT
  Age: 6 Decade
  Sex: Male

DRUGS (10)
  1. ZOLEDRONIC ACID [Suspect]
     Active Substance: ZOLEDRONIC ACID
     Indication: PLASMA CELL MYELOMA
     Dosage: ONCE A MONTH FOR 5 MONTHS
  2. CYCLOPHOSPHAMIDE. [Suspect]
     Active Substance: CYCLOPHOSPHAMIDE
     Indication: PLASMA CELL MYELOMA
     Dosage: UNK
  3. AMBISOME [Concomitant]
     Active Substance: AMPHOTERICIN B
     Indication: PULMONARY CAVITATION
     Dosage: THREE TIMES A WEEK
  4. ACICLOVIR [Concomitant]
     Active Substance: ACYCLOVIR
     Dosage: THREE TIMES A WEEK
  5. ALLOPURINOL. [Concomitant]
     Active Substance: ALLOPURINOL
     Dosage: THREE TIMES A WEEK
  6. BORTEZOMIB. [Suspect]
     Active Substance: BORTEZOMIB
     Indication: PLASMA CELL MYELOMA
     Route: 042
  7. DEXAMETHASONE. [Suspect]
     Active Substance: DEXAMETHASONE
     Indication: PLASMA CELL MYELOMA
     Dosage: UNK
  8. COTRIMOXAZOLE [Concomitant]
     Active Substance: SULFAMETHOXAZOLE\TRIMETHOPRIM
     Dosage: THREE TIMES A WEEK
  9. RANITIDINE. [Concomitant]
     Active Substance: RANITIDINE
     Dosage: THREE TIMES A WEEK
  10. AMBISOME [Concomitant]
     Active Substance: AMPHOTERICIN B
     Indication: BRONCHOPULMONARY ASPERGILLOSIS

REACTIONS (8)
  - Tooth abscess [Recovering/Resolving]
  - Tooth deposit [Recovering/Resolving]
  - Periodontal disease [Recovering/Resolving]
  - Sinusitis [Recovering/Resolving]
  - Oroantral fistula [Recovered/Resolved]
  - Bacterial infection [Recovering/Resolving]
  - Periodontitis [Recovering/Resolving]
  - Osteonecrosis of jaw [Recovering/Resolving]
